FAERS Safety Report 10305123 (Version 2)
Quarter: 2014Q3

REPORT INFORMATION
  Report Type: Spontaneous
  Country: JP (occurrence: JP)
  Receive Date: 20140715
  Receipt Date: 20140806
  Transmission Date: 20150326
  Serious: Yes (Other)
  Sender: FDA-Public Use
  Company Number: JP-ASTELLAS-2014JP013813

PATIENT
  Age: 49 Year
  Sex: Male

DRUGS (6)
  1. METHOTREXATE [Concomitant]
     Active Substance: METHOTREXATE
     Indication: PROPHYLAXIS AGAINST GRAFT VERSUS HOST DISEASE
     Dosage: UNK UNK, UNKNOWN FREQ.
     Route: 065
  2. FOSCAVIR [Concomitant]
     Active Substance: FOSCARNET SODIUM
     Indication: CYTOMEGALOVIRUS INFECTION
     Dosage: UNK UNK, UNKNOWN FREQ.
     Route: 065
  3. PROGRAF [Suspect]
     Active Substance: TACROLIMUS\TACROLIMUS ANHYDROUS
     Dosage: UNK UNK, UNKNOWN FREQ.
     Route: 065
  4. GANCICLOVIR [Concomitant]
     Active Substance: GANCICLOVIR
     Indication: CYTOMEGALOVIRUS INFECTION
     Dosage: UNK UNK, UNKNOWN FREQ.
     Route: 065
  5. PROGRAF [Suspect]
     Active Substance: TACROLIMUS\TACROLIMUS ANHYDROUS
     Indication: PROPHYLAXIS AGAINST GRAFT VERSUS HOST DISEASE
     Dosage: UNK, UNKNOWN FREQ.
     Route: 065
  6. VALGANCICLOVIR [Concomitant]
     Active Substance: VALGANCICLOVIR
     Indication: CYTOMEGALOVIRUS INFECTION
     Dosage: UNK UNK, UNKNOWN FREQ.
     Route: 065

REACTIONS (2)
  - Renal vessel disorder [Unknown]
  - Thrombotic microangiopathy [Recovering/Resolving]
